FAERS Safety Report 5842893-7 (Version None)
Quarter: 2008Q3

REPORT INFORMATION
  Report Type: 
  Country: None (occurrence: None)
  Receive Date: 20080811
  Receipt Date: 20080725
  Transmission Date: 20090109
  Serious: Yes (Death)
  Sender: FDA-Public Use
  Company Number: 2008SP001599

PATIENT
  Sex: Male

DRUGS (1)
  1. XOPENEX [Suspect]
     Indication: CHRONIC OBSTRUCTIVE PULMONARY DISEASE
     Dosage: 1.25 MG/3 ML; INHALATION
     Route: 055
     Dates: start: 20070101, end: 20070101

REACTIONS (3)
  - ENDOTRACHEAL INTUBATION COMPLICATION [None]
  - OBSTRUCTION [None]
  - RESPIRATORY DISTRESS [None]
